FAERS Safety Report 9653675 (Version 3)
Quarter: 2013Q4

REPORT INFORMATION
  Report Type: Spontaneous
  Country: JP (occurrence: JP)
  Receive Date: 20131029
  Receipt Date: 20131104
  Transmission Date: 20140711
  Serious: Yes (Hospitalization)
  Sender: FDA-Public Use
  Company Number: JP-PFIZER INC-2013271405

PATIENT
  Age: 48 Year
  Sex: Female

DRUGS (1)
  1. XANAX [Suspect]
     Dosage: UNK

REACTIONS (1)
  - Fracture [Unknown]
